FAERS Safety Report 6393038-9 (Version None)
Quarter: 2009Q4

REPORT INFORMATION
  Report Type: 
  Country: None (occurrence: None)
  Receive Date: 20091008
  Receipt Date: 20091006
  Transmission Date: 20100525
  Serious: Yes (Other)
  Sender: FDA-Public Use
  Company Number: FR-WYE-G04567309

PATIENT
  Age: 18 Year
  Sex: Male

DRUGS (1)
  1. ADVIL [Suspect]
     Indication: PAIN IN JAW
     Dosage: UNKNOWN
     Route: 048
     Dates: start: 20070101

REACTIONS (1)
  - CELLULITIS [None]
